FAERS Safety Report 14391599 (Version 1)
Quarter: 2018Q1

REPORT INFORMATION
  Report Type: Spontaneous
  Country: US (occurrence: US)
  Receive Date: 20180116
  Receipt Date: 20180116
  Transmission Date: 20180509
  Serious: Yes (Other)
  Sender: FDA-Public Use
  Company Number: US-BAYER-2018-007353

PATIENT
  Age: 90 Year
  Sex: Female

DRUGS (2)
  1. PROTAMINE [Concomitant]
     Active Substance: PROTAMINE
  2. ACETYLSALICYLIC ACID({=100 MG) [Suspect]
     Active Substance: ASPIRIN

REACTIONS (1)
  - Pericardial haemorrhage [None]
